FAERS Safety Report 9470545 (Version 2)
Quarter: 2014Q1

REPORT INFORMATION
  Report Type: Spontaneous
  Country: IT (occurrence: None)
  Receive Date: 20130815
  Receipt Date: 20131112
  Transmission Date: 20141002
  Serious: Yes (Other)
  Sender: FDA-Public Use
  Company Number: 2013DEPIT00548

PATIENT
  Age: 6 Year
  Sex: Female

DRUGS (2)
  1. DEPOCYTE (CYTARABINE) LIPOSOME INJECTABLE SUSPENSION, MG [Suspect]
     Indication: LYMPHOMA
     Route: 037
  2. DEXAMETHASONE (DEXAMETHASONE) [Concomitant]

REACTIONS (4)
  - Febrile neutropenia [None]
  - Thrombocytopenia [None]
  - Haematotoxicity [None]
  - Disease progression [None]
